FAERS Safety Report 25101967 (Version 1)
Quarter: 2025Q1

REPORT INFORMATION
  Report Type: Spontaneous
  Country: US (occurrence: US)
  Receive Date: 20250320
  Receipt Date: 20250320
  Transmission Date: 20250409
  Serious: Yes (Hospitalization)
  Sender: Alora Pharma
  Company Number: US-ACELLA PHARMACEUTICALS, LLC-2025ALO02095

PATIENT
  Age: 56 Year
  Sex: Female

DRUGS (1)
  1. MEPROBAMATE [Suspect]
     Active Substance: MEPROBAMATE

REACTIONS (5)
  - Ventricular extrasystoles [Recovered/Resolved]
  - Toxicity to various agents [Recovered/Resolved]
  - Bezoar [Recovered/Resolved]
  - Coma [Recovered/Resolved]
  - Overdose [Recovered/Resolved]
